FAERS Safety Report 9295018 (Version 1)
Quarter: 2013Q2

REPORT INFORMATION
  Report Type: Spontaneous
  Country: US (occurrence: None)
  Receive Date: 20130516
  Receipt Date: 20130516
  Transmission Date: 20140414
  Serious: Yes (Hospitalization)
  Sender: FDA-Public Use
  Company Number: None

PATIENT
  Age: 15 Year
  Sex: Female
  Weight: 63.8 kg

DRUGS (1)
  1. MICROGESTIN [Suspect]

REACTIONS (5)
  - Limb injury [None]
  - Limb injury [None]
  - Ecchymosis [None]
  - Thrombophlebitis superficial [None]
  - Deep vein thrombosis [None]
